FAERS Safety Report 17805828 (Version 2)
Quarter: 2020Q2

REPORT INFORMATION
  Report Type: Spontaneous
  Country: FR (occurrence: FR)
  Receive Date: 20200519
  Receipt Date: 20200527
  Transmission Date: 20200714
  Serious: Yes (Hospitalization, Other)
  Sender: FDA-Public Use
  Company Number: FR-ASTRAZENECA-2020SE62358

PATIENT
  Age: 22 Year
  Sex: Male

DRUGS (9)
  1. MAXILASE [Suspect]
     Active Substance: PANCRELIPASE
     Dosage: 15.0DF ONCE/SINGLE ADMINISTRATION
     Route: 065
     Dates: start: 20200325
  2. DESLORATADINE. [Suspect]
     Active Substance: DESLORATADINE
     Dosage: 75.0MG ONCE/SINGLE ADMINISTRATION
     Route: 048
     Dates: start: 20200325
  3. ALCOOL [Concomitant]
     Active Substance: ALCOHOL
  4. ESOMEPRAZOLE. [Suspect]
     Active Substance: ESOMEPRAZOLE MAGNESIUM
     Dosage: 840.0MG ONCE/SINGLE ADMINISTRATION
     Route: 048
     Dates: start: 20200325
  5. IBUPROFENE [Suspect]
     Active Substance: IBUPROFEN
     Dosage: 20.0DF ONCE/SINGLE ADMINISTRATION
     Route: 048
     Dates: start: 20200325
  6. AMOXICILLINE [Suspect]
     Active Substance: AMOXICILLIN
     Dosage: 7.0G ONCE/SINGLE ADMINISTRATION
     Route: 048
     Dates: start: 20200325
  7. CETIRIZINE (DICHLORHYDRATE DE) [Suspect]
     Active Substance: CETIRIZINE HYDROCHLORIDE
     Dosage: 220.0MG ONCE/SINGLE ADMINISTRATION
     Route: 048
     Dates: start: 20200325
  8. PARACETAMOL [Suspect]
     Active Substance: ACETAMINOPHEN
     Dosage: 8.0G ONCE/SINGLE ADMINISTRATION
     Route: 048
     Dates: start: 20200325
  9. TIORFAN [Suspect]
     Active Substance: RACECADOTRIL
     Dosage: 12.0DF ONCE/SINGLE ADMINISTRATION
     Route: 048
     Dates: start: 20200325

REACTIONS (5)
  - Vomiting [Recovered/Resolved]
  - Suicide attempt [Unknown]
  - Intentional overdose [Recovered/Resolved]
  - Abdominal pain upper [Recovered/Resolved]
  - Drug level increased [Recovered/Resolved]

NARRATIVE: CASE EVENT DATE: 20200325
